FAERS Safety Report 7733553-6 (Version None)
Quarter: 2011Q3

REPORT INFORMATION
  Report Type: 
  Country: None (occurrence: None)
  Receive Date: 20110907
  Receipt Date: 20110824
  Transmission Date: 20111222
  Serious: Yes (Hospitalization, Other)
  Sender: FDA-Public Use
  Company Number: CA-ELI_LILLY_AND_COMPANY-CA201108007321

PATIENT
  Sex: Male

DRUGS (18)
  1. ZYPREXA [Suspect]
     Dosage: 10 MG, UNKNOWN
  2. ZYPREXA [Suspect]
     Dosage: 5 MG, QID
  3. BENZYDAMINE [Concomitant]
  4. ZYPREXA [Suspect]
     Indication: SCHIZOPHRENIA
     Dosage: 7.5 MG, UNKNOWN
  5. ZYPREXA [Suspect]
     Dosage: 5 MG, QD
  6. PREDNISONE [Concomitant]
  7. EFFEXOR [Concomitant]
  8. WELLBUTRIN [Concomitant]
  9. ALTACE [Concomitant]
  10. VIAGRA [Concomitant]
  11. SEROQUEL [Concomitant]
  12. CLONAZEPAM [Concomitant]
  13. BENZTROPINE MESYLATE [Concomitant]
  14. ZOCOR [Concomitant]
  15. ZYPREXA [Suspect]
     Dosage: 7.5 MG, BID
  16. FLUPHENAZINE [Concomitant]
  17. CHLORPROMAZINE [Concomitant]
  18. NORVASC [Concomitant]

REACTIONS (6)
  - DIABETES MELLITUS [None]
  - MYOCARDIAL INFARCTION [None]
  - DIABETIC GANGRENE [None]
  - HYPOGLYCAEMIA [None]
  - DIABETIC KETOACIDOSIS [None]
  - DIABETIC NEUROPATHY [None]
